FAERS Safety Report 24843093 (Version 2)
Quarter: 2025Q1

REPORT INFORMATION
  Report Type: Report from Study
  Country: US (occurrence: US)
  Receive Date: 20250115
  Receipt Date: 20250115
  Transmission Date: 20250408
  Serious: No
  Sender: HRA PHARMA
  Company Number: US-ORG100014127-2024000334

PATIENT
  Age: 69 Year
  Sex: Male

DRUGS (15)
  1. LYSODREN [Suspect]
     Active Substance: MITOTANE
     Indication: Adrenal gland cancer
     Dosage: 500 MG; 2 TABLETS 3 TIMES A DAY
     Route: 048
     Dates: start: 20240821
  2. ACETAMIN TAB 500MG [Concomitant]
     Indication: Product used for unknown indication
  3. ALLOPURINOL TAB 100MG [Concomitant]
     Indication: Product used for unknown indication
  4. ASPIRIN LOW TAB 81MG EC [Concomitant]
     Indication: Product used for unknown indication
  5. DIAZEPAM TAB 5MG [Concomitant]
     Indication: Product used for unknown indication
  6. GABAPENTIN [Concomitant]
     Active Substance: GABAPENTIN
     Indication: Product used for unknown indication
  7. HYDRALAZINE [Concomitant]
     Active Substance: HYDRALAZINE HYDROCHLORIDE
     Indication: Product used for unknown indication
  8. HYDROCORT TAB 10MG [Concomitant]
     Indication: Product used for unknown indication
  9. MIEBO DRO 1.3GM/ML [Concomitant]
     Indication: Product used for unknown indication
  10. MULTIVITAMIN TAB ADULTS [Concomitant]
     Indication: Product used for unknown indication
  11. OMEPRAZOLE TAB 20MG [Concomitant]
     Indication: Product used for unknown indication
  12. ROSUVASTATIN [Concomitant]
     Active Substance: ROSUVASTATIN
     Indication: Product used for unknown indication
  13. SENNA-S TAB 8.6-50MG [Concomitant]
     Indication: Product used for unknown indication
  14. TADALAFIL [Concomitant]
     Active Substance: TADALAFIL
     Indication: Product used for unknown indication
  15. VITAMIN D3 CAP 5000UNIT [Concomitant]
     Indication: Product used for unknown indication

REACTIONS (4)
  - Constipation [Recovering/Resolving]
  - Nausea [Not Recovered/Not Resolved]
  - Fatigue [Not Recovered/Not Resolved]
  - Dizziness [Not Recovered/Not Resolved]

NARRATIVE: CASE EVENT DATE: 20240823
